FAERS Safety Report 5605766-0 (Version None)
Quarter: 2008Q1

REPORT INFORMATION
  Report Type: 
  Country: None (occurrence: None)
  Receive Date: 20080123
  Receipt Date: 20080111
  Transmission Date: 20080703
  Serious: Yes (Life-Threatening, Hospitalization, Other)
  Sender: FDA-Public Use
  Company Number: WAES 0801USA00690

PATIENT
  Age: 69 Year
  Sex: Male

DRUGS (11)
  1. VYTORIN [Suspect]
     Indication: ACUTE CORONARY SYNDROME
     Dosage: 10-40 MG/DAILY PO
     Route: 048
     Dates: start: 20070824, end: 20071220
  2. TAB PLACEBO (UNSPECIFIED) [Suspect]
     Indication: ACUTE CORONARY SYNDROME
     Dosage: PO
     Route: 048
     Dates: start: 20070824, end: 20071220
  3. TAB PLACEBO (UNSPECIFIED) [Suspect]
     Indication: ACUTE CORONARY SYNDROME
     Dosage: PO
     Route: 048
     Dates: start: 20070824, end: 20071220
  4. FUROSEMIDE [Suspect]
     Indication: CARDIAC FAILURE CONGESTIVE
     Dosage: IV
     Route: 042
     Dates: start: 20071008, end: 20071011
  5. OMNIC [Concomitant]
  6. CLONAZEPAM [Concomitant]
  7. ASPIRIN [Concomitant]
  8. BISOPROLOL [Concomitant]
  9. CLOPIDOGREL BISULFATE [Concomitant]
  10. OMEPRAZOLE [Concomitant]
  11. PERINDOPRIL [Concomitant]

REACTIONS (6)
  - CARDIAC FAILURE CONGESTIVE [None]
  - LABORATORY TEST ABNORMAL [None]
  - MYALGIA [None]
  - PROTEINURIA [None]
  - PULMONARY OEDEMA [None]
  - RENAL FAILURE CHRONIC [None]
